FAERS Safety Report 10015611 (Version 3)
Quarter: 2014Q2

REPORT INFORMATION
  Report Type: Report from Study
  Country: JP (occurrence: JP)
  Receive Date: 20140317
  Receipt Date: 20140415
  Transmission Date: 20141212
  Serious: Yes (Hospitalization)
  Sender: FDA-Public Use
  Company Number: JP-NAPPMUNDI-GBR-2014-0017432

PATIENT
  Age: 76 Year
  Sex: Female

DRUGS (14)
  1. OXYCODONE HCL PR TABLET [Suspect]
     Indication: BACK PAIN
     Dosage: 20 MG, DAILY
     Route: 048
     Dates: start: 20140227, end: 20140302
  2. OXYCODONE HCL PR TABLET [Suspect]
     Dosage: 10 MG, DAILY
     Route: 048
     Dates: start: 20140224, end: 20140226
  3. CYMBALTA [Concomitant]
     Indication: POST LAMINECTOMY SYNDROME
     Dosage: 20 MG, DAILY
     Route: 048
     Dates: end: 20140302
  4. OPALMON [Concomitant]
     Indication: PERIPHERAL VASCULAR DISORDER
     Dosage: 15 MCG, DAILY
     Route: 048
     Dates: end: 20140302
  5. LYRICA [Concomitant]
     Indication: POST LAMINECTOMY SYNDROME
     Dosage: 75 MG, DAILY
     Dates: end: 20140302
  6. LUNESTA [Concomitant]
     Indication: INSOMNIA
     Dosage: 2 MG, DAILY
     Route: 048
     Dates: end: 20140302
  7. TOKISHAKUYAKUSAN [Concomitant]
     Indication: POST LAMINECTOMY SYNDROME
     Dosage: 7.5 G, DAILY
     Route: 048
     Dates: end: 20140302
  8. GOSHAJINKIGAN [Concomitant]
     Indication: POST LAMINECTOMY SYNDROME
     Dosage: 5 G, DAILY
     Route: 048
     Dates: end: 20140302
  9. PURSENNID                          /00142207/ [Concomitant]
     Indication: CONSTIPATION
     Dosage: 24 MG, DAILY
     Route: 048
     Dates: end: 20140302
  10. NOVAMIN                            /00013301/ [Concomitant]
     Indication: PROPHYLAXIS OF NAUSEA AND VOMITING
     Dosage: 15 MG, DAILY
     Route: 048
     Dates: start: 20140224, end: 20140302
  11. BESACOLIN [Concomitant]
     Indication: NEUROGENIC BLADDER
     Dosage: 90 MG, DAILY
     Route: 048
     Dates: start: 20140227, end: 20140302
  12. MAGMITT [Concomitant]
     Indication: CONSTIPATION
     Dosage: 750 MG, DAILY
     Route: 048
     Dates: start: 20140227, end: 20140302
  13. LAXOBERON [Concomitant]
     Indication: CONSTIPATION
     Dosage: UNK
     Route: 048
     Dates: end: 20140302
  14. MS ONSHIPPU [Concomitant]
     Indication: POST LAMINECTOMY SYNDROME
     Dosage: UNK
     Route: 062
     Dates: end: 20140302

REACTIONS (1)
  - Septic shock [Recovered/Resolved]
